FAERS Safety Report 8063742 (Version 3)
Quarter: 2013Q2

REPORT INFORMATION
  Report Type: Spontaneous
  Country: US (occurrence: US)
  Receive Date: 20110801
  Receipt Date: 20120709
  Transmission Date: 20140414
  Serious: Yes (Other)
  Sender: FDA-Public Use
  Company Number: PHHY2011US16184

PATIENT
  Age: 68 Year
  Sex: Female
  Weight: 77 kg

DRUGS (13)
  1. GLEEVEC (IMATINIB) [Suspect]
     Indication: GASTROINTESTINAL NEOPLASM
     Dosage: 400 MG DAILY
     Route: 048
     Dates: start: 201009
  2. ESTRADERM [Concomitant]
     Dosage: UNK UKN, UNK
  3. LYRICA [Concomitant]
     Dosage: UNK UKN, UNK
  4. AMBIEN [Concomitant]
     Dosage: UNK UKN, UNK
  5. ATIVAN [Concomitant]
     Dosage: UNK UKN, UNK
  6. SYNTHROID [Concomitant]
     Dosage: UNK UKN, UNK
  7. NORVASC [Concomitant]
     Dosage: UNK UKN, UNK
  8. LEXAPRO [Concomitant]
     Dosage: UNK UKN, UNK
  9. REMERON [Concomitant]
     Dosage: UNK UKN, UNK
  10. MILK OF MAGNESIA [Concomitant]
     Dosage: UNK UKN, UNK
  11. PERCOCET [Concomitant]
     Dosage: UNK UKN, UNK
  12. SOMA [Concomitant]
     Dosage: UNK UKN, UNK
  13. BENADRYL (AMMONIUM CHLORIDE, DIPHENHYDRAMINE HYDROCHLORIDE, MENTHOL, SODIUM CITRATE) [Concomitant]

REACTIONS (11)
  - WEIGHT INCREASED [Unknown]
  - EYE SWELLING [Unknown]
  - JOINT SWELLING [Unknown]
  - SCIATICA [Not Recovered/Not Resolved]
  - MUSCULOSKELETAL CHEST PAIN [Unknown]
  - DECREASED APPETITE [Unknown]
  - HAEMORRHOIDS [Not Recovered/Not Resolved]
  - NAUSEA [Not Recovered/Not Resolved]
  - MUSCLE SPASMS [Not Recovered/Not Resolved]
  - PAIN [Not Recovered/Not Resolved]
  - RASH [Not Recovered/Not Resolved]
